FAERS Safety Report 9703546 (Version 1)
Quarter: 2013Q4

REPORT INFORMATION
  Report Type: Spontaneous
  Country: US (occurrence: None)
  Receive Date: 20131121
  Receipt Date: 20131121
  Transmission Date: 20140711
  Serious: No
  Sender: FDA-Public Use
  Company Number: None

PATIENT
  Age: 67 Year
  Sex: Male

DRUGS (1)
  1. IPILIMUMAB [Suspect]
     Indication: PROSTATE CANCER
     Dosage: 68 DAYS ?TAKEN 4- INJECTIONS
     Dates: start: 20120417, end: 20120622

REACTIONS (4)
  - Hepatic failure [None]
  - Renal failure [None]
  - Sepsis [None]
  - Toxicity to various agents [None]
